FAERS Safety Report 9449038 (Version 2)
Quarter: 2013Q3

REPORT INFORMATION
  Report Type: Spontaneous
  Country: GB (occurrence: None)
  Receive Date: 20130806
  Receipt Date: 20130813
  Transmission Date: 20140515
  Serious: Yes (Death, Other)
  Sender: FDA-Public Use
  Company Number: 1833015

PATIENT
  Age: 67 Year
  Sex: Male

DRUGS (5)
  1. MEROPENEM [Suspect]
     Indication: PRODUCT USED FOR UNKNOWN INDICATION
     Dosage: UNKNOWN, (NOT OVERWISE SPECIFIED)
     Route: 042
  2. DAPTOMYCIN [Suspect]
     Indication: STAPHYLOCOCCAL INFECTION
     Dosage: NOT OTHERWISE SPECIFIED
     Route: 042
     Dates: start: 20130222, end: 20130222
  3. LINEZOLID [Suspect]
     Indication: PRODUCT USED FOR UNKNOWN INDICATION
     Dates: start: 20130222, end: 20130402
  4. FUSIDATE SODIUM [Suspect]
     Indication: PRODUCT USED FOR UNKNOWN INDICATION
  5. FA [Concomitant]

REACTIONS (6)
  - Splenic embolism [None]
  - Neurotoxicity [None]
  - Somnolence [None]
  - Cardiac valve vegetation [None]
  - Thrombocytopenia [None]
  - Pulmonary mass [None]
